FAERS Safety Report 10149361 (Version 1)
Quarter: 2014Q2

REPORT INFORMATION
  Report Type: Spontaneous
  Country: ES (occurrence: ES)
  Receive Date: 20140502
  Receipt Date: 20140502
  Transmission Date: 20141212
  Serious: Yes (Death)
  Sender: FDA-Public Use
  Company Number: ES-B.I. PHARMACEUTICALS,INC./RIDGEFIELD-2014-BI-19083ES

PATIENT
  Age: 42 Year
  Sex: Male

DRUGS (1)
  1. PRADAXA [Suspect]
     Indication: DEEP VEIN THROMBOSIS
     Dosage: 220 MG
     Route: 048
     Dates: start: 20131114

REACTIONS (1)
  - Upper gastrointestinal haemorrhage [Fatal]
